FAERS Safety Report 8582205 (Version 3)
Quarter: 2013Q2

REPORT INFORMATION
  Report Type: Spontaneous
  Country: US (occurrence: US)
  Receive Date: 20120528
  Receipt Date: 20130507
  Transmission Date: 20140414
  Serious: Yes (Hospitalization, Other)
  Sender: FDA-Public Use
  Company Number: US-ELI_LILLY_AND_COMPANY-US201205006071

PATIENT
  Sex: Female

DRUGS (2)
  1. FORTEO [Suspect]
     Dosage: 20 UG, QD
     Dates: start: 201107
  2. FORTEO [Suspect]
     Dosage: 20 UG, QD

REACTIONS (4)
  - Injury [Unknown]
  - Balance disorder [Unknown]
  - Fall [Unknown]
  - Colon cancer [Unknown]
